FAERS Safety Report 10505591 (Version 1)
Quarter: 2014Q4

REPORT INFORMATION
  Report Type: Spontaneous
  Country: US (occurrence: US)
  Receive Date: 20141008
  Receipt Date: 20141008
  Transmission Date: 20150528
  Serious: No
  Sender: FDA-Public Use
  Company Number: US-PFIZER INC-2014272634

PATIENT
  Sex: Female

DRUGS (7)
  1. LYRICA [Suspect]
     Active Substance: PREGABALIN
     Indication: ARACHNOIDITIS
     Dosage: UNK
  2. LYRICA [Suspect]
     Active Substance: PREGABALIN
     Dosage: 300 MG, 2X/DAY
  3. CYMBALTA [Concomitant]
     Active Substance: DULOXETINE HYDROCHLORIDE
     Indication: ANTIDEPRESSANT THERAPY
     Dosage: 30 MG, 1X/DAY IN MORNING
  4. ATORVASTATIN [Concomitant]
     Active Substance: ATORVASTATIN
     Indication: BLOOD CHOLESTEROL
     Dosage: 10 MG, 1X/DAY
  5. THYROXINE [Concomitant]
     Active Substance: LEVOTHYROXINE
     Indication: THYROID DISORDER
     Dosage: UNK, 1X/DAY
  6. LYRICA [Suspect]
     Active Substance: PREGABALIN
     Dosage: 150 MG, 2X/DAY
  7. OXYBUTYNIN ER [Concomitant]
     Active Substance: OXYBUTYNIN
     Indication: MICTURITION URGENCY
     Dosage: 50 MG, UNK

REACTIONS (7)
  - Drug ineffective [Unknown]
  - Visual impairment [Unknown]
  - Feeling abnormal [Unknown]
  - Fatigue [Unknown]
  - Pain [Unknown]
  - Somnolence [Unknown]
  - Dizziness [Unknown]
